FAERS Safety Report 5133679-X (Version None)
Quarter: 2006Q4

REPORT INFORMATION
  Report Type: 
  Country: None (occurrence: None)
  Receive Date: 20061024
  Receipt Date: 20060210
  Transmission Date: 20070319
  Serious: No
  Sender: FDA-Public Use
  Company Number: US-AMGEN-US168471

PATIENT
  Age: 54 Year
  Sex: Male

DRUGS (11)
  1. SENSIPAR [Suspect]
     Indication: HYPERPARATHYROIDISM SECONDARY
     Route: 048
     Dates: start: 20060123
  2. DILANTIN [Concomitant]
  3. CLONIDINE [Concomitant]
  4. DIOVAN [Concomitant]
  5. POTASSIUM CHLORIDE [Concomitant]
  6. MINOXIDIL [Concomitant]
  7. NIFEDIPINE [Concomitant]
  8. NITRO-DUR [Concomitant]
     Route: 062
  9. PHOSLO [Concomitant]
  10. VITAMIN B COMPLEX CAP [Concomitant]
  11. KEFLEX [Concomitant]
     Dates: start: 20060201

REACTIONS (2)
  - EAR INFECTION [None]
  - HEADACHE [None]
